FAERS Safety Report 13325047 (Version 1)
Quarter: 2017Q1

REPORT INFORMATION
  Report Type: Spontaneous
  Country: DE (occurrence: DE)
  Receive Date: 20170310
  Receipt Date: 20170310
  Transmission Date: 20170428
  Serious: Yes (Other)
  Sender: FDA-Public Use
  Company Number: DE-BAUSCH-BL-2017-006475

PATIENT
  Sex: Female

DRUGS (1)
  1. DEXA EDO [Suspect]
     Active Substance: DEXAMETHASONE SODIUM PHOSPHATE
     Indication: PRODUCT USED FOR UNKNOWN INDICATION
     Dosage: DAILY APPLICATION
     Route: 047

REACTIONS (2)
  - Eyelid disorder [Unknown]
  - Nasal mucosal disorder [Recovered/Resolved with Sequelae]
